FAERS Safety Report 12892711 (Version 1)
Quarter: 2016Q4

REPORT INFORMATION
  Report Type: Spontaneous
  Country: US (occurrence: US)
  Receive Date: 20161027
  Receipt Date: 20161027
  Transmission Date: 20170207
  Serious: Yes (Hospitalization, Other)
  Sender: FDA-Public Use
  Company Number: None

PATIENT
  Age: 39 Year
  Sex: Female
  Weight: 61.29 kg

DRUGS (1)
  1. MIRENA [Suspect]
     Active Substance: LEVONORGESTREL
     Dates: start: 20120331, end: 20160907

REACTIONS (7)
  - Complication of device removal [None]
  - Nausea [None]
  - Scar [None]
  - Device issue [None]
  - Uterine pain [None]
  - Embedded device [None]
  - Infertility female [None]

NARRATIVE: CASE EVENT DATE: 20160907
